FAERS Safety Report 9495344 (Version 1)
Quarter: 2013Q3

REPORT INFORMATION
  Report Type: Spontaneous
  Country: US (occurrence: US)
  Receive Date: 20130903
  Receipt Date: 20130903
  Transmission Date: 20140515
  Serious: Yes (Other)
  Sender: FDA-Public Use
  Company Number: US-GLAXOSMITHKLINE-A1039892A

PATIENT
  Age: 65 Year
  Sex: Female

DRUGS (1)
  1. ADVAIR [Suspect]
     Indication: ASTHMA
     Route: 055
     Dates: start: 200904

REACTIONS (1)
  - Skin cancer [Not Recovered/Not Resolved]
